FAERS Safety Report 4894546-X (Version None)
Quarter: 2006Q1

REPORT INFORMATION
  Report Type: 
  Country: None (occurrence: None)
  Receive Date: 20060127
  Receipt Date: 20051003
  Transmission Date: 20060701
  Serious: Yes (Hospitalization)
  Sender: FDA-Public Use
  Company Number: US-MERCK-0510USA02489

PATIENT
  Age: 59 Year
  Sex: Female
  Weight: 79 kg

DRUGS (4)
  1. VIOXX [Suspect]
     Indication: PAIN IN EXTREMITY
     Route: 048
     Dates: start: 20030101, end: 20050101
  2. VIOXX [Suspect]
     Indication: BACK PAIN
     Route: 048
     Dates: start: 20030101, end: 20050101
  3. ALEVE [Concomitant]
     Route: 065
  4. [THERAPY UNSPECIFIED] [Concomitant]
     Route: 065

REACTIONS (5)
  - CEREBROVASCULAR ACCIDENT [None]
  - LIMB DEFORMITY [None]
  - LOSS OF CONSCIOUSNESS [None]
  - OVERDOSE [None]
  - SURGERY [None]
